FAERS Safety Report 6040357-1 (Version None)
Quarter: 2009Q1

REPORT INFORMATION
  Report Type: 
  Country: None (occurrence: None)
  Receive Date: 20090116
  Receipt Date: 20080319
  Transmission Date: 20090719
  Serious: Yes (Hospitalization)
  Sender: FDA-Public Use
  Company Number: US-BRISTOL-MYERS SQUIBB COMPANY-14090278

PATIENT
  Age: 13 Year
  Sex: Male

DRUGS (5)
  1. ABILIFY [Suspect]
     Indication: AFFECTIVE DISORDER
     Dosage: INITIAL DOSE WAS 10 MG DAILY;THERAPY DURATION = ABOUT ONE YEAR
     Route: 048
     Dates: start: 20070201
  2. TRAZODONE HCL [Concomitant]
     Dosage: AT NIGHT
  3. DEPAKOTE [Concomitant]
  4. CLONIDINE [Concomitant]
     Dosage: 0.1 MG AM,0.05 MG NOON,1.5MG HS
  5. FOCALIN [Concomitant]
     Dosage: MORNING

REACTIONS (1)
  - BLOOD GLUCOSE INCREASED [None]
